FAERS Safety Report 5286439-3 (Version None)
Quarter: 2007Q2

REPORT INFORMATION
  Report Type: 
  Country: None (occurrence: None)
  Receive Date: 20070404
  Receipt Date: 20070330
  Transmission Date: 20071010
  Serious: No
  Sender: FDA-Public Use
  Company Number: 2006UW10766

PATIENT
  Age: 46 Year
  Sex: Male
  Weight: 136.4 kg

DRUGS (10)
  1. SEROQUEL [Suspect]
     Indication: HALLUCINATION, AUDITORY
     Route: 048
     Dates: start: 20000101
  2. SEROQUEL [Suspect]
     Indication: DELUSION
     Route: 048
     Dates: start: 20000101
  3. SEROQUEL [Suspect]
     Indication: SCHIZOPHRENIA
     Route: 048
     Dates: start: 20000101
  4. ABILIFY [Concomitant]
  5. GEODON [Concomitant]
     Dates: start: 20010101
  6. HALDOL [Concomitant]
  7. RISPERDAL [Concomitant]
  8. THORAZINE [Concomitant]
     Dates: start: 20020101
  9. TRILAFON [Concomitant]
  10. ZYPREXA [Concomitant]
     Dates: start: 19970101, end: 20000101

REACTIONS (3)
  - BLOOD CHOLESTEROL INCREASED [None]
  - BLOOD TRIGLYCERIDES INCREASED [None]
  - DIABETES MELLITUS NON-INSULIN-DEPENDENT [None]
